FAERS Safety Report 5780266-6 (Version None)
Quarter: 2008Q2

REPORT INFORMATION
  Report Type: 
  Country: None (occurrence: None)
  Receive Date: 20080620
  Receipt Date: 20080620
  Transmission Date: 20081010
  Serious: Yes (Hospitalization)
  Sender: FDA-Public Use
  Company Number: PHHO2007AU01210

PATIENT
  Sex: Male
  Weight: 89.6 kg

DRUGS (3)
  1. RISEDRONATE SODIUM [Suspect]
     Indication: OSTEITIS DEFORMANS
     Dosage: 30MG
     Dates: start: 20021221
  2. RISEDRONATE SODIUM [Suspect]
     Dosage: EXTENDED OBSERVATION PERIOD
  3. METFORMIN [Concomitant]
     Indication: TYPE 2 DIABETES MELLITUS

REACTIONS (8)
  - BRONCHITIS [None]
  - CHILLS [None]
  - COUGH [None]
  - DYSPNOEA [None]
  - ESCHERICHIA INFECTION [None]
  - LETHARGY [None]
  - PNEUMONIA [None]
  - PYREXIA [None]
